FAERS Safety Report 18227433 (Version 2)
Quarter: 2020Q3

REPORT INFORMATION
  Report Type: Spontaneous
  Country: US (occurrence: US)
  Receive Date: 20200903
  Receipt Date: 20200907
  Transmission Date: 20201103
  Serious: Yes (Disabling, Other)
  Sender: FDA-Public Use
  Company Number: US-ABBVIE-20K-163-3546678-00

PATIENT
  Age: 72 Year
  Sex: Female

DRUGS (1)
  1. MAVYRET [Suspect]
     Active Substance: GLECAPREVIR\PIBRENTASVIR
     Indication: PRODUCT USED FOR UNKNOWN INDICATION
     Route: 048
     Dates: start: 20200804, end: 20200826

REACTIONS (13)
  - Swelling [Unknown]
  - Musculoskeletal disorder [Not Recovered/Not Resolved]
  - Pain [Unknown]
  - Dizziness [Not Recovered/Not Resolved]
  - Blindness [Not Recovered/Not Resolved]
  - Glaucoma [Not Recovered/Not Resolved]
  - Headache [Unknown]
  - Weight decreased [Not Recovered/Not Resolved]
  - Diarrhoea [Unknown]
  - Grip strength decreased [Unknown]
  - Gait disturbance [Not Recovered/Not Resolved]
  - Chromaturia [Not Recovered/Not Resolved]
  - Cataract [Not Recovered/Not Resolved]

NARRATIVE: CASE EVENT DATE: 202008
